FAERS Safety Report 6075169-6 (Version None)
Quarter: 2009Q1

REPORT INFORMATION
  Report Type: 
  Country: None (occurrence: None)
  Receive Date: 20090212
  Receipt Date: 20090203
  Transmission Date: 20090719
  Serious: Yes (Hospitalization, Other)
  Sender: FDA-Public Use
  Company Number: US-CELGENEUS-163-21880-08100150

PATIENT
  Age: 73 Year
  Sex: Male
  Weight: 99.7 kg

DRUGS (28)
  1. REVLIMID [Suspect]
     Indication: DIFFUSE LARGE B-CELL LYMPHOMA
     Route: 048
     Dates: start: 20080929, end: 20080930
  2. RITUXIMAB [Suspect]
     Indication: DIFFUSE LARGE B-CELL LYMPHOMA
     Dosage: 375 MG/M2 AT INCREASING RATES.
     Route: 051
     Dates: start: 20080929, end: 20080929
  3. ASPIRIN [Concomitant]
     Route: 048
  4. AMBIEN [Concomitant]
     Indication: INSOMNIA
     Route: 048
  5. ATENOLOL [Concomitant]
     Indication: BLOOD PRESSURE
     Route: 048
  6. FLONASE [Concomitant]
     Dosage: 1 PUFF
     Route: 055
  7. FOLIC ACID [Concomitant]
     Indication: SUPPLEMENTATION THERAPY
     Route: 048
  8. MIRALAX [Concomitant]
     Indication: CONSTIPATION
     Route: 048
  9. MIRALAX [Concomitant]
     Route: 048
  10. NEXIUM [Concomitant]
     Indication: ABDOMINAL DISCOMFORT
     Route: 048
  11. OXYCODONE HCL [Concomitant]
     Indication: PAIN
     Route: 048
  12. PHENERGAN [Concomitant]
     Indication: NAUSEA
     Route: 048
  13. PHENERGAN [Concomitant]
     Indication: VOMITING
  14. POTASSIUM CHLORIDE [Concomitant]
     Indication: DRUG USE FOR UNKNOWN INDICATION
     Route: 048
  15. POTASSIUM CHLORIDE [Concomitant]
     Route: 048
  16. PRAVACHOL [Concomitant]
     Route: 048
  17. ZOFRAN [Concomitant]
     Indication: NAUSEA
     Route: 048
  18. ZOFRAN [Concomitant]
     Indication: VOMITING
  19. VITAMIN D [Concomitant]
     Indication: DRUG USE FOR UNKNOWN INDICATION
     Dosage: 50,000 UNITS
     Route: 048
  20. LYRICA [Concomitant]
     Indication: PAIN
     Route: 048
  21. MAGNESIUM OXIDE [Concomitant]
     Indication: DRUG USE FOR UNKNOWN INDICATION
     Route: 048
  22. OXYCONTIN [Concomitant]
     Indication: PAIN
     Route: 048
  23. ACETAMINOPHEN [Concomitant]
     Indication: PREMEDICATION
     Route: 048
     Dates: start: 20080929, end: 20080929
  24. ACETAMINOPHEN [Concomitant]
     Indication: BODY TEMPERATURE INCREASED
     Route: 048
  25. DIPHENHYDRAMINE HCL [Concomitant]
     Indication: PREMEDICATION
     Route: 051
     Dates: start: 20080929, end: 20080929
  26. DIPHENHYDRAMINE HCL [Concomitant]
     Route: 051
  27. ADVAIR DISKUS 100/50 [Concomitant]
     Indication: DRUG USE FOR UNKNOWN INDICATION
     Dosage: 100/50 ONE PUFF
     Route: 055
  28. MEPERIDINE HCL [Concomitant]
     Indication: CHILLS
     Route: 051

REACTIONS (3)
  - BLOOD CREATININE INCREASED [None]
  - HYPERCALCAEMIA [None]
  - PAIN [None]
